FAERS Safety Report 9555761 (Version 3)
Quarter: 2013Q4

REPORT INFORMATION
  Report Type: Spontaneous
  Country: US (occurrence: US)
  Receive Date: 20130926
  Receipt Date: 20131211
  Transmission Date: 20140711
  Serious: Yes (Other)
  Sender: FDA-Public Use
  Company Number: PHEH2013US020038

PATIENT
  Sex: Male

DRUGS (17)
  1. EXELON PATCH [Suspect]
     Dosage: 4.6 MG, DAILY
     Route: 062
  2. DONEPEZIL [Suspect]
     Dosage: 1 DF, QD
  3. ASPIRIN [Concomitant]
     Dosage: 81 MG, UNK
  4. MULTI-VIT [Concomitant]
     Dosage: UNK UKN, UNK
  5. FISH OIL [Concomitant]
     Dosage: 1000 MG, UNK
  6. OMEPRAZOLE [Concomitant]
     Indication: ABDOMINAL DISCOMFORT
     Dosage: 40 MG, UNK
  7. COLACE [Concomitant]
     Dosage: 100 MG, UNK
  8. NITROGLYCERIN [Concomitant]
     Dosage: 0.4 MG, UNK
  9. CARVEDILOL [Concomitant]
     Indication: BLOOD PRESSURE ABNORMAL
     Dosage: 12.5 MG, BID
  10. INSULIN [Concomitant]
     Dosage: 18 UKN, UNK
  11. WARFARIN [Concomitant]
     Dosage: 6 MG, UNK
  12. FLUOXETINE [Concomitant]
     Dosage: 20 MG, UNK
  13. CRESTOR [Concomitant]
     Indication: BLOOD CHOLESTEROL ABNORMAL
     Dosage: 20 MG, UNK
  14. DIGOXIN [Concomitant]
     Dosage: 0.125MG THREE TIMES A WEEK
  15. JANUVIA [Concomitant]
     Indication: DIABETES MELLITUS
     Dosage: 50 MG, UNK
  16. ZEMPLAR [Concomitant]
     Indication: HYPERPARATHYROIDISM SECONDARY
     Dosage: 1MICROGRAM THREE TIMES A WEEK
  17. GLYBURIDE [Concomitant]
     Indication: DIABETES MELLITUS
     Dosage: 0.5 MG, UNK

REACTIONS (2)
  - Speech disorder [Unknown]
  - Dizziness [Unknown]
